FAERS Safety Report 9506478 (Version 1)
Quarter: 2013Q3

REPORT INFORMATION
  Report Type: Spontaneous
  Country: US (occurrence: None)
  Receive Date: 20130905
  Receipt Date: 20130905
  Transmission Date: 20140515
  Serious: No
  Sender: FDA-Public Use
  Company Number: None

PATIENT
  Age: 82 Year
  Sex: Female
  Weight: 72.12 kg

DRUGS (5)
  1. ALENDRONATE SODIUM TABLETS [Suspect]
     Indication: OSTEOPOROSIS
     Route: 048
     Dates: start: 20120731, end: 20130731
  2. LISINOPRIL/HCTZ [Concomitant]
  3. BENICAR [Concomitant]
  4. NORVASC [Concomitant]
  5. LIPITOR [Concomitant]

REACTIONS (2)
  - Product substitution issue [None]
  - Spinal fracture [None]
